FAERS Safety Report 7498697-5 (Version None)
Quarter: 2011Q2

REPORT INFORMATION
  Report Type: 
  Country: None (occurrence: None)
  Receive Date: 20110524
  Receipt Date: 20110510
  Transmission Date: 20111010
  Serious: Yes (Hospitalization)
  Sender: FDA-Public Use
  Company Number: JP-JNJFOC-20110505685

PATIENT
  Age: 70 Year
  Sex: Female

DRUGS (4)
  1. REMICADE [Suspect]
     Indication: RHEUMATOID ARTHRITIS
     Route: 042
  2. REMICADE [Suspect]
     Dosage: 8TH INFUSION
     Route: 042
     Dates: start: 20110101
  3. METHOTREXATE [Concomitant]
     Route: 048
  4. REMICADE [Suspect]
     Route: 042
     Dates: start: 20100309

REACTIONS (1)
  - PERITONEAL TUBERCULOSIS [None]
